FAERS Safety Report 14505805 (Version 1)
Quarter: 2018Q1

REPORT INFORMATION
  Report Type: Spontaneous
  Country: US (occurrence: US)
  Receive Date: 20180207
  Receipt Date: 20180207
  Transmission Date: 20180509
  Serious: Yes (Death)
  Sender: FDA-Public Use
  Company Number: None

PATIENT
  Age: 61 Year
  Sex: Female
  Weight: 51.75 kg

DRUGS (2)
  1. CHOLESTEROL MEDICATION [Concomitant]
     Active Substance: UNSPECIFIED INGREDIENT
  2. LAMICTAL [Suspect]
     Active Substance: LAMOTRIGINE
     Indication: ANXIETY
     Route: 048

REACTIONS (7)
  - Pain [None]
  - Fatigue [None]
  - Pneumonia [None]
  - Musculoskeletal stiffness [None]
  - Meningitis aseptic [None]
  - Lethargy [None]
  - Fungal infection [None]

NARRATIVE: CASE EVENT DATE: 20160917
